FAERS Safety Report 9634486 (Version 2)
Quarter: 2013Q4

REPORT INFORMATION
  Report Type: Spontaneous
  Country: US (occurrence: US)
  Receive Date: 20131021
  Receipt Date: 20131021
  Transmission Date: 20140711
  Serious: No
  Sender: FDA-Public Use
  Company Number: US-PURDUE-USA-2013-0101073

PATIENT
  Age: 20 Year
  Sex: Male

DRUGS (3)
  1. BUTRANS [Suspect]
     Indication: MUSCULOSKELETAL PAIN
     Dosage: 10 MCG/HR, WEEKLY
     Route: 062
     Dates: start: 201210
  2. BUTRANS [Suspect]
     Indication: PAIN
     Dosage: 20 MCG/HR, WEEKLY
     Route: 062
     Dates: start: 201301, end: 20130410
  3. PERCOCET                           /00867901/ [Concomitant]
     Indication: BREAKTHROUGH PAIN
     Dosage: 1 TABLET, 2-4 TIMES DAILY
     Route: 048

REACTIONS (3)
  - Application site discolouration [Not Recovered/Not Resolved]
  - Application site rash [Recovered/Resolved]
  - Product adhesion issue [Unknown]
